FAERS Safety Report 4966761-8 (Version None)
Quarter: 2006Q2

REPORT INFORMATION
  Report Type: 
  Country: None (occurrence: None)
  Receive Date: 20060407
  Receipt Date: 20060329
  Transmission Date: 20061013
  Serious: Yes (Hospitalization)
  Sender: FDA-Public Use
  Company Number: FR-MERCK-0603FRA00101

PATIENT
  Age: 55 Year
  Sex: Male

DRUGS (18)
  1. CANCIDAS [Suspect]
     Indication: PYREXIA
     Route: 042
     Dates: start: 20051202, end: 20051206
  2. CILASTATIN SODIUM AND IMIPENEM [Suspect]
     Indication: PYREXIA
     Route: 042
     Dates: start: 20051202, end: 20051206
  3. FLUCONAZOLE [Concomitant]
     Route: 042
     Dates: start: 20051129, end: 20051202
  4. CIPROFLOXACIN HYDROCHLORIDE [Concomitant]
     Route: 048
     Dates: start: 20051018, end: 20051202
  5. VANCOMYCIN [Concomitant]
     Route: 042
     Dates: start: 20051129, end: 20051206
  6. PIPERACILLIN SODIUM AND TAZOBACTAM SODIUM [Concomitant]
     Route: 042
     Dates: start: 20051018, end: 20051202
  7. FUROSEMIDE [Concomitant]
     Route: 048
  8. PERINDOPRIL ERBUMINE [Concomitant]
     Route: 048
     Dates: end: 20051202
  9. CLORAZEPATE DIPOTASSIUM [Concomitant]
     Route: 048
     Dates: end: 20051202
  10. PRAVASTATIN SODIUM [Concomitant]
     Route: 048
     Dates: end: 20051202
  11. HYDROXYZINE HYDROCHLORIDE [Concomitant]
     Route: 048
     Dates: end: 20051202
  12. AMIODARONE HYDROCHLORIDE [Concomitant]
     Route: 048
  13. OMEPRAZOLE [Concomitant]
     Route: 048
     Dates: end: 20051202
  14. FERROUS SULFATE [Concomitant]
     Route: 048
     Dates: end: 20051202
  15. POTASSIUM CHLORIDE [Concomitant]
     Route: 048
     Dates: end: 20051202
  16. SPIRONOLACTONE [Concomitant]
     Route: 065
     Dates: end: 20051202
  17. FLUINDIONE [Concomitant]
     Route: 048
  18. ESOMEPRAZOLE MAGNESIUM [Concomitant]
     Route: 065
     Dates: start: 20051202

REACTIONS (1)
  - HISTIOCYTOSIS HAEMATOPHAGIC [None]
